FAERS Safety Report 9246649 (Version 1)
Quarter: 2013Q2

REPORT INFORMATION
  Report Type: Spontaneous
  Country: FR (occurrence: FR)
  Receive Date: 20130422
  Receipt Date: 20130422
  Transmission Date: 20140414
  Serious: Yes (Hospitalization)
  Sender: FDA-Public Use
  Company Number: FR-JNJFOC-20130410553

PATIENT
  Age: 88 Year
  Sex: Female

DRUGS (19)
  1. IBUPROFEN [Suspect]
     Route: 048
  2. IBUPROFEN [Suspect]
     Indication: PRODUCT USED FOR UNKNOWN INDICATION
     Route: 048
     Dates: end: 20130325
  3. DEBRIDAT [Suspect]
     Indication: PRODUCT USED FOR UNKNOWN INDICATION
     Route: 048
     Dates: end: 20130325
  4. ATHYMIL [Suspect]
     Indication: PRODUCT USED FOR UNKNOWN INDICATION
     Route: 048
  5. SPASFON [Suspect]
     Indication: PRODUCT USED FOR UNKNOWN INDICATION
     Route: 048
     Dates: end: 20130325
  6. MYOLASTAN [Suspect]
     Indication: PRODUCT USED FOR UNKNOWN INDICATION
     Route: 048
     Dates: end: 20130325
  7. VALIUM [Suspect]
     Indication: PRODUCT USED FOR UNKNOWN INDICATION
     Route: 048
  8. XYZALL [Suspect]
     Indication: PRODUCT USED FOR UNKNOWN INDICATION
     Route: 048
  9. TRANSIPEG [Concomitant]
     Route: 048
  10. ARTELAC [Concomitant]
     Route: 047
  11. LIPOSIC [Concomitant]
     Route: 047
  12. TANAKAN [Concomitant]
     Route: 048
     Dates: end: 20130325
  13. LEVOTHYROX [Concomitant]
     Dosage: 75 OR 100 (UNSPECIFIED UNIT) ON ALTERNATE DATE
     Route: 048
  14. KARDEGIC [Concomitant]
     Route: 048
  15. INIPOMP [Concomitant]
     Route: 048
  16. DOLIPRANE [Concomitant]
     Route: 048
     Dates: end: 20130325
  17. TRAVATAN [Concomitant]
     Dosage: UNKNOWN DOSE IN MCG/ML
     Route: 047
  18. ATACAND [Concomitant]
     Route: 048
  19. CORDARONE [Concomitant]
     Route: 048

REACTIONS (4)
  - Fall [Recovered/Resolved]
  - Confusional state [Recovered/Resolved]
  - Hyponatraemia [Recovered/Resolved]
  - Malaise [Recovered/Resolved]
